FAERS Safety Report 7644597-7 (Version None)
Quarter: 2011Q3

REPORT INFORMATION
  Report Type: 
  Country: None (occurrence: None)
  Receive Date: 20110729
  Receipt Date: 20110726
  Transmission Date: 20111222
  Serious: Yes (Other)
  Sender: FDA-Public Use
  Company Number: US-PFIZER INC-2011169985

PATIENT
  Age: 41 Year
  Sex: Female

DRUGS (16)
  1. GLIBOMET [Concomitant]
     Indication: DIABETES MELLITUS
     Dosage: UNK
     Dates: start: 20051003
  2. MULTIVITAMIN ^LAPPE^ [Concomitant]
     Indication: PROPHYLAXIS
     Dosage: UNK
     Dates: start: 20080131
  3. LEKOVIT CA [Concomitant]
     Indication: PROPHYLAXIS
     Dosage: UNK
     Dates: start: 20080529
  4. ACETYLSALICYLIC ACID [Concomitant]
     Indication: PROPHYLAXIS
     Dosage: UNK
     Dates: start: 20100217
  5. BLINDED THERAPY [Suspect]
     Indication: BREAST CANCER
     Dosage: UNK
     Dates: start: 20100217, end: 20110212
  6. ALUDROX [Concomitant]
     Indication: HYPOMAGNESAEMIA
     Dosage: UNK
     Dates: start: 20070412
  7. TRILIPIX [Suspect]
     Indication: HYPERTRIGLYCERIDAEMIA
     Dosage: 135 MG, DAILY AT BEDTIME
     Dates: start: 20100318, end: 20110421
  8. IMODIUM [Concomitant]
     Indication: DIARRHOEA
     Dosage: UNK
  9. OXYMETAZOLINE HYDROCHLORIDE [Concomitant]
     Indication: HYPERSENSITIVITY
     Dosage: UNK
     Dates: start: 20101107
  10. TRILIPIX [Suspect]
     Dosage: 135 MG, 1X/DAY
     Dates: start: 20110525
  11. INSULIN GLARGINE [Concomitant]
     Indication: DIABETES MELLITUS
     Dosage: UNK
     Dates: start: 20100217
  12. OXYMETAZOLINE HYDROCHLORIDE [Concomitant]
     Indication: UPPER RESPIRATORY TRACT INFECTION
  13. LIPITOR [Suspect]
     Indication: HYPERTRIGLYCERIDAEMIA
     Dosage: 20 MG, DAILY AT BEDTIME
     Dates: start: 20100318, end: 20110421
  14. B KOMPLEX [Concomitant]
     Indication: PROPHYLAXIS
     Dosage: UNK
     Dates: start: 20110401
  15. LETROZOLE [Concomitant]
     Indication: BREAST CANCER
     Dosage: UNK
     Dates: start: 20100217
  16. ERGOCALCIFEROL [Concomitant]
     Indication: PROPHYLAXIS
     Dosage: UNK
     Dates: start: 20100806

REACTIONS (3)
  - HYPERTRIGLYCERIDAEMIA [None]
  - DRUG DOSE OMISSION [None]
  - TREATMENT NONCOMPLIANCE [None]
